FAERS Safety Report 16030699 (Version 1)
Quarter: 2019Q1

REPORT INFORMATION
  Report Type: Spontaneous
  Country: US (occurrence: US)
  Receive Date: 20190304
  Receipt Date: 20190304
  Transmission Date: 20190418
  Serious: No
  Sender: FDA-Public Use
  Company Number: US-PFIZER INC-2019082224

PATIENT
  Age: 16 Year
  Sex: Female
  Weight: 56.7 kg

DRUGS (1)
  1. EUCRISA [Suspect]
     Active Substance: CRISABOROLE
     Indication: ECZEMA
     Dosage: UNK (SMALL AMOUNT TO AFFECTED AREA)
     Route: 061
     Dates: start: 20190220

REACTIONS (3)
  - Application site laceration [Unknown]
  - Application site pain [Not Recovered/Not Resolved]
  - Application site erythema [Unknown]

NARRATIVE: CASE EVENT DATE: 20190220
